FAERS Safety Report 4903054-9 (Version None)
Quarter: 2006Q1

REPORT INFORMATION
  Report Type: 
  Country: None (occurrence: None)
  Receive Date: 20060207
  Receipt Date: 20050922
  Transmission Date: 20060701
  Serious: Yes (Other)
  Sender: FDA-Public Use
  Company Number: CA-ROCHE-418780

PATIENT
  Age: 34 Year
  Sex: Female
  Weight: 83 kg

DRUGS (12)
  1. NAPROSYN [Suspect]
     Indication: DRUG USE FOR UNKNOWN INDICATION
     Route: 048
  2. AMOXIL [Suspect]
     Indication: DRUG USE FOR UNKNOWN INDICATION
     Route: 048
  3. ALESSE [Concomitant]
  4. REACTINE [Concomitant]
  5. ATARAX [Concomitant]
  6. OPTICROM [Concomitant]
  7. VENTOLIN [Concomitant]
  8. ADVIL [Concomitant]
  9. ZANTAC [Concomitant]
  10. FLOVENT [Concomitant]
  11. IMOVANE [Concomitant]
  12. CITALOPRAM HYDROBROMIDE [Concomitant]

REACTIONS (5)
  - DERMATITIS BULLOUS [None]
  - PAIN [None]
  - RASH SCARLATINIFORM [None]
  - SKIN EXFOLIATION [None]
  - VULVAL DISORDER [None]
